FAERS Safety Report 4392743-3 (Version None)
Quarter: 2004Q3

REPORT INFORMATION
  Report Type: 
  Country: None (occurrence: None)
  Receive Date: 20040702
  Receipt Date: 20040326
  Transmission Date: 20050211
  Serious: Yes (Other)
  Sender: FDA-Public Use
  Company Number: 2004UW05959

PATIENT
  Age: 75 Year
  Sex: Female
  Weight: 63.5036 kg

DRUGS (9)
  1. CRESTOR [Suspect]
     Indication: BLOOD CHOLESTEROL INCREASED
     Dosage: 10 MG PO
     Route: 048
     Dates: start: 20031201
  2. POTASSIUM [Concomitant]
  3. ZETIA [Concomitant]
  4. PYRIMIDINE [Concomitant]
  5. LASIX [Concomitant]
  6. COUMADIN [Concomitant]
  7. COENZYME Q10 [Concomitant]
  8. FOLIC ACID [Concomitant]
  9. ASPIRIN [Concomitant]

REACTIONS (1)
  - ALOPECIA [None]
